FAERS Safety Report 20946707 (Version 1)
Quarter: 2022Q2

REPORT INFORMATION
  Report Type: Spontaneous
  Country: CN (occurrence: CN)
  Receive Date: 20220610
  Receipt Date: 20220610
  Transmission Date: 20220721
  Serious: Yes (Other)
  Sender: FDA-Public Use
  Company Number: CN-FreseniusKabi-FK202207885

PATIENT
  Age: 65 Year
  Sex: Male
  Weight: 69.00 kg

DRUGS (1)
  1. INTRALIPID [Suspect]
     Active Substance: EGG PHOSPHOLIPIDS\GLYCERIN\SOYBEAN OIL
     Indication: Nutritional supplementation
     Route: 041
     Dates: start: 20220521, end: 20220521

REACTIONS (5)
  - Chest discomfort [Recovered/Resolved]
  - Tremor [Recovered/Resolved]
  - Dyspnoea [Recovered/Resolved]
  - Nausea [Recovered/Resolved]
  - Tachypnoea [Recovered/Resolved]

NARRATIVE: CASE EVENT DATE: 20220521
